FAERS Safety Report 7372001-5 (Version None)
Quarter: 2011Q1

REPORT INFORMATION
  Report Type: 
  Country: None (occurrence: None)
  Receive Date: 20110324
  Receipt Date: 20110314
  Transmission Date: 20110831
  Serious: Yes (Hospitalization, Other)
  Sender: FDA-Public Use
  Company Number: KR-SANOFI-AVENTIS-2011SA015353

PATIENT
  Age: 47 Year
  Sex: Male
  Weight: 67 kg

DRUGS (2)
  1. LANTUS [Suspect]
     Route: 058
  2. LANTUS [Suspect]
     Indication: DIABETES MELLITUS
     Route: 058
     Dates: start: 20100407, end: 20101201

REACTIONS (6)
  - NAUSEA [None]
  - DYSPNOEA [None]
  - HYPOGLYCAEMIC UNCONSCIOUSNESS [None]
  - ASTHENIA [None]
  - DIZZINESS [None]
  - HYPERGLYCAEMIA [None]
